FAERS Safety Report 18160223 (Version 1)
Quarter: 2020Q3

REPORT INFORMATION
  Report Type: Spontaneous
  Country: IN (occurrence: IN)
  Receive Date: 20200817
  Receipt Date: 20200817
  Transmission Date: 20201103
  Serious: Yes (Hospitalization)
  Sender: FDA-Public Use
  Company Number: IN-009507513-2008IND007762

PATIENT
  Age: 48 Year
  Sex: Male
  Weight: 41.5 kg

DRUGS (26)
  1. CARBOPLATIN. [Suspect]
     Active Substance: CARBOPLATIN
     Indication: NON-SMALL CELL LUNG CANCER
     Dosage: UNK
     Route: 042
     Dates: start: 20191106
  2. ULTRACET [Concomitant]
     Active Substance: ACETAMINOPHEN\TRAMADOL HYDROCHLORIDE
     Indication: GENERAL PHYSICAL CONDITION
     Dosage: UNK
     Route: 065
     Dates: start: 20191127
  3. DYTOR [Concomitant]
     Active Substance: TORSEMIDE
     Indication: GENERAL PHYSICAL CONDITION
     Dosage: 10 MG, UNKNOWN
     Route: 065
     Dates: start: 20191121
  4. DOLO [Concomitant]
     Dosage: 650 MG, UNKNOWN
     Route: 065
     Dates: start: 20191106
  5. FOLVITE [Concomitant]
     Active Substance: FOLIC ACID
     Dosage: 5 MG, UNKNOWN
     Route: 065
     Dates: start: 20191106
  6. CYANOCOBALAMIN. [Concomitant]
     Active Substance: CYANOCOBALAMIN
     Dosage: UNK
     Route: 065
     Dates: start: 20191219
  7. CANAKINUMAB. [Suspect]
     Active Substance: CANAKINUMAB
     Indication: NON-SMALL CELL LUNG CANCER
     Dosage: CODE NOT BROKEN
     Route: 058
     Dates: start: 20191106
  8. ULTRACET [Concomitant]
     Active Substance: ACETAMINOPHEN\TRAMADOL HYDROCHLORIDE
     Dosage: UNK
     Route: 065
     Dates: start: 20191219
  9. DUPHALAC [Concomitant]
     Active Substance: LACTULOSE
     Dosage: 15 ML, UNKNOWN
     Route: 065
     Dates: start: 20191106
  10. PEMBROLIZUMAB. [Suspect]
     Active Substance: PEMBROLIZUMAB
     Indication: NON-SMALL CELL LUNG CANCER
     Dosage: UNK
     Route: 042
     Dates: start: 20191106
  11. IMODIUM [Concomitant]
     Active Substance: LOPERAMIDE HYDROCHLORIDE
     Dosage: UNK
     Route: 065
     Dates: start: 20191106
  12. ALBUMIN HUMAN [Concomitant]
     Active Substance: ALBUMIN HUMAN
     Indication: GENERAL PHYSICAL CONDITION
     Dosage: 100 ML, UNKNOWN
     Route: 065
     Dates: start: 20191120
  13. DOLO [Concomitant]
     Indication: GENERAL PHYSICAL CONDITION
     Dosage: 650 MG, UNKNOWN
     Route: 065
     Dates: start: 20191219
  14. DUPHALAC [Concomitant]
     Active Substance: LACTULOSE
     Indication: GENERAL PHYSICAL CONDITION
     Dosage: 15 ML, UNKNOWN
     Route: 065
     Dates: start: 20191219
  15. DUPHALAC [Concomitant]
     Active Substance: LACTULOSE
     Dosage: UNK
     Route: 065
     Dates: start: 20191127
  16. FOLVITE [Concomitant]
     Active Substance: FOLIC ACID
     Indication: GENERAL PHYSICAL CONDITION
     Dosage: 5 MG, UNKNOWN
     Route: 065
     Dates: start: 20191121
  17. FOLVITE [Concomitant]
     Active Substance: FOLIC ACID
     Dosage: 5 MG, UNKNOWN
     Route: 065
     Dates: start: 20191127
  18. ULTRACET [Concomitant]
     Active Substance: ACETAMINOPHEN\TRAMADOL HYDROCHLORIDE
     Dosage: UNK
     Route: 065
     Dates: start: 20191106
  19. CYANOCOBALAMIN. [Concomitant]
     Active Substance: CYANOCOBALAMIN
     Indication: GENERAL PHYSICAL CONDITION
     Dosage: UNK
     Route: 065
     Dates: start: 20191127
  20. TOSSEX [Concomitant]
     Indication: GENERAL PHYSICAL CONDITION
     Dosage: UNK
     Route: 065
     Dates: start: 20191014
  21. TOSSEX [Concomitant]
     Dosage: UNK
     Route: 065
     Dates: start: 20191120
  22. PEMETREXED DISODIUM [Suspect]
     Active Substance: PEMETREXED DISODIUM
     Indication: NON-SMALL CELL LUNG CANCER
     Dosage: UNK
     Route: 042
     Dates: start: 20191106
  23. LASIX [Concomitant]
     Active Substance: FUROSEMIDE
     Indication: GENERAL PHYSICAL CONDITION
     Dosage: UNK
     Route: 065
     Dates: start: 20191120
  24. FOLVITE [Concomitant]
     Active Substance: FOLIC ACID
     Dosage: 5 MG, UNKNOWN
     Route: 065
     Dates: start: 20191219
  25. IMODIUM [Concomitant]
     Active Substance: LOPERAMIDE HYDROCHLORIDE
     Indication: GENERAL PHYSICAL CONDITION
     Dosage: UNK
     Route: 065
     Dates: start: 20191127
  26. DOLO [Concomitant]
     Dosage: UNK
     Route: 065
     Dates: start: 20191127

REACTIONS (2)
  - Neutropenia [Recovered/Resolved]
  - Diarrhoea [Recovered/Resolved]

NARRATIVE: CASE EVENT DATE: 20200308
